FAERS Safety Report 8658100 (Version 2)
Quarter: 2013Q1

REPORT INFORMATION
  Report Type: Spontaneous
  Country: US (occurrence: US)
  Receive Date: 20120710
  Receipt Date: 20130107
  Transmission Date: 20140127
  Serious: Yes (Congenital Anomaly, Other)
  Sender: FDA-Public Use
  Company Number: US-PFIZER INC-2012162478

PATIENT
  Sex: Female

DRUGS (5)
  1. ZOLOFT [Suspect]
     Indication: DEPRESSION
     Dosage: UNK
     Route: 064
     Dates: start: 20091230
  2. PRENATAL VITAMINS [Concomitant]
     Dosage: UNK
     Route: 064
  3. PROZAC [Concomitant]
     Dosage: UNK
     Route: 064
  4. ZANTAC [Concomitant]
     Dosage: UNK
     Route: 064
  5. FLAGYL [Concomitant]
     Dosage: UNK
     Route: 064

REACTIONS (4)
  - Maternal exposure timing unspecified [Unknown]
  - Exomphalos [Unknown]
  - Congenital umbilical hernia [Unknown]
  - Gastrointestinal disorder congenital [Unknown]
